FAERS Safety Report 25000698 (Version 2)
Quarter: 2025Q3

REPORT INFORMATION
  Report Type: Spontaneous
  Country: US (occurrence: US)
  Receive Date: 20250222
  Receipt Date: 20250916
  Transmission Date: 20251021
  Serious: No
  Sender: SANOFI AVENTIS
  Company Number: US-SA-2025SA051040

PATIENT
  Sex: Female

DRUGS (34)
  1. DUPIXENT [Suspect]
     Active Substance: DUPILUMAB
     Indication: Dermatitis atopic
     Dosage: 300 MG, QOW
     Route: 058
  2. BENEFIBER [Concomitant]
     Active Substance: STARCH, WHEAT
  3. BISACODYL [Concomitant]
     Active Substance: BISACODYL
  4. CLEARLAX [Concomitant]
     Active Substance: POLYETHYLENE GLYCOL 3350
  5. ASPIRIN [Concomitant]
     Active Substance: ASPIRIN
  6. BENTYL [Concomitant]
     Active Substance: DICYCLOMINE HYDROCHLORIDE
  7. CALCIUM [Concomitant]
     Active Substance: CALCIUM
  8. DOXYCYCLINE [Concomitant]
     Active Substance: DOXYCYCLINE
  9. ELIQUIS [Concomitant]
     Active Substance: APIXABAN
  10. EZETIMIBE [Concomitant]
     Active Substance: EZETIMIBE
  11. FARXIGA [Concomitant]
     Active Substance: DAPAGLIFLOZIN PROPANEDIOL
  12. FERGON [Concomitant]
     Active Substance: FERROUS GLUCONATE
  13. GABAPENTIN [Concomitant]
     Active Substance: GABAPENTIN
  14. GLUCOSAMINE [Concomitant]
     Active Substance: GLUCOSAMINE
  15. HYDROCODONE [Concomitant]
     Active Substance: HYDROCODONE
  16. JANUMET [Concomitant]
     Active Substance: METFORMIN HYDROCHLORIDE\SITAGLIPTIN PHOSPHATE
  17. LASIX [Concomitant]
     Active Substance: FUROSEMIDE
  18. METAMUCIL [Concomitant]
     Active Substance: PLANTAGO SEED
  19. METOPROLOL SUCCINATE [Concomitant]
     Active Substance: METOPROLOL SUCCINATE
  20. MIRALAX [Concomitant]
     Active Substance: POLYETHYLENE GLYCOL 3350
  21. NEURONTIN [Concomitant]
     Active Substance: GABAPENTIN
  22. PLAQUENIL [Concomitant]
     Active Substance: HYDROXYCHLOROQUINE SULFATE
  23. POTASSIUM CHLORIDE [Concomitant]
     Active Substance: POTASSIUM CHLORIDE
  24. PREDNISONE [Concomitant]
     Active Substance: PREDNISONE
  25. RAMIPRIL [Concomitant]
     Active Substance: RAMIPRIL
  26. ROPINIROLE HYDROCHLORIDE [Concomitant]
     Active Substance: ROPINIROLE HYDROCHLORIDE
  27. SYNTHROID [Concomitant]
     Active Substance: LEVOTHYROXINE SODIUM
  28. VASCEPA [Concomitant]
     Active Substance: ICOSAPENT ETHYL
  29. VYTORIN [Concomitant]
     Active Substance: EZETIMIBE\SIMVASTATIN
  30. CLOBETASOL [Concomitant]
     Active Substance: CLOBETASOL
  31. PROBIOTICS [PROBIOTICS NOS] [Concomitant]
  32. CYANOCOBALAMIN [Concomitant]
     Active Substance: CYANOCOBALAMIN
  33. VITAMIN D NOS [Concomitant]
     Active Substance: CHOLECALCIFEROL\ERGOCALCIFEROL
  34. SPIRONOLACTONE [Concomitant]
     Active Substance: SPIRONOLACTONE

REACTIONS (13)
  - Dry skin [Not Recovered/Not Resolved]
  - Constipation [Not Recovered/Not Resolved]
  - Influenza [Not Recovered/Not Resolved]
  - Contusion [Not Recovered/Not Resolved]
  - Injection site mass [Unknown]
  - Memory impairment [Not Recovered/Not Resolved]
  - Gastrointestinal disorder [Not Recovered/Not Resolved]
  - Full blood count increased [Not Recovered/Not Resolved]
  - Diarrhoea [Not Recovered/Not Resolved]
  - Pruritus [Not Recovered/Not Resolved]
  - Injection site pain [Not Recovered/Not Resolved]
  - Injection site erythema [Not Recovered/Not Resolved]
  - Rash [Not Recovered/Not Resolved]
